FAERS Safety Report 20965400 (Version 1)
Quarter: 2022Q2

REPORT INFORMATION
  Report Type: Spontaneous
  Country: NL (occurrence: NL)
  Receive Date: 20220616
  Receipt Date: 20220616
  Transmission Date: 20220721
  Serious: Yes (Other)
  Sender: FDA-Public Use
  Company Number: None

PATIENT
  Sex: Female
  Weight: 81 kg

DRUGS (1)
  1. SAXENDA [Suspect]
     Active Substance: LIRAGLUTIDE
     Indication: Obesity
     Dosage: 1 DF, QD (1 X PER DAY 1 INJECTION 2.4 EH)
     Route: 065
     Dates: start: 20220420, end: 20220531

REACTIONS (1)
  - Temperature intolerance [Recovered/Resolved]
